FAERS Safety Report 7166689-1 (Version None)
Quarter: 2010Q4

REPORT INFORMATION
  Report Type: 
  Country: None (occurrence: None)
  Receive Date: 20101216
  Receipt Date: 20101201
  Transmission Date: 20110411
  Serious: Yes (Other)
  Sender: FDA-Public Use
  Company Number: US-ROCHE-724514

PATIENT
  Sex: Female
  Weight: 81.6 kg

DRUGS (6)
  1. ACCUTANE [Suspect]
     Indication: ACNE
     Route: 048
     Dates: start: 20000911, end: 20010130
  2. ASPIRIN [Concomitant]
  3. LEVAQUIN [Concomitant]
  4. PHENAZOPYRIDINE [Concomitant]
     Dosage: DRUG REPORTED AS PHENAZOPYRID.
  5. DESOGEN [Concomitant]
     Dosage: DRUG REPORTED AS DESOGEN 28.
     Dates: start: 19940101
  6. TETRACYCLINE [Concomitant]
     Route: 048
     Dates: start: 19921201

REACTIONS (17)
  - ACNE [None]
  - BLOOD CHOLESTEROL INCREASED [None]
  - CHAPPED LIPS [None]
  - CHEILITIS [None]
  - COLITIS ULCERATIVE [None]
  - CYSTITIS INTERSTITIAL [None]
  - DEPRESSION [None]
  - DRY SKIN [None]
  - GASTROINTESTINAL INJURY [None]
  - HAEMORRHOIDS [None]
  - HERPES VIRUS INFECTION [None]
  - HIGH DENSITY LIPOPROTEIN INCREASED [None]
  - INFLAMMATORY BOWEL DISEASE [None]
  - INTESTINAL HAEMORRHAGE [None]
  - IRRITABLE BOWEL SYNDROME [None]
  - NASAL DRYNESS [None]
  - POLYP [None]
